FAERS Safety Report 11636331 (Version 1)
Quarter: 2015Q4

REPORT INFORMATION
  Report Type: Spontaneous
  Country: IE (occurrence: IE)
  Receive Date: 20151016
  Receipt Date: 20151016
  Transmission Date: 20160304
  Serious: Yes (Other)
  Sender: FDA-Public Use
  Company Number: IE-ROCHE-1645584

PATIENT

DRUGS (2)
  1. RIBAVIRIN. [Suspect]
     Active Substance: RIBAVIRIN
     Indication: HEPATITIS C
     Route: 048
  2. PEG-INTERFERON ALFA 2A [Suspect]
     Active Substance: PEGINTERFERON ALFA-2A
     Indication: HEPATITIS C
     Route: 065

REACTIONS (7)
  - Bone marrow failure [Unknown]
  - Psychiatric symptom [Unknown]
  - Fatigue [Unknown]
  - Neuropathy peripheral [Unknown]
  - Influenza like illness [Unknown]
  - Seizure [Unknown]
  - Weight decreased [Unknown]
